FAERS Safety Report 9314162 (Version 1)
Quarter: 2013Q2

REPORT INFORMATION
  Report Type: Spontaneous
  Country: US (occurrence: US)
  Receive Date: 20130529
  Receipt Date: 20130529
  Transmission Date: 20140414
  Serious: Yes (Disabling, Other)
  Sender: FDA-Public Use
  Company Number: US-UCBSA-086602

PATIENT
  Age: 40 Year
  Sex: Female
  Weight: 99.79 kg

DRUGS (16)
  1. KEPPRA XR [Suspect]
     Indication: CONVULSION
     Dosage: STRENGTH: 500 MG
     Route: 048
  2. NEURONTIN [Suspect]
     Indication: CONVULSION
     Dosage: 300 MG
     Route: 048
  3. NEURONTIN [Suspect]
     Indication: CONVULSION
     Dosage: 300 MG
     Route: 048
     Dates: start: 200911
  4. TOPAMAX [Suspect]
     Indication: CONVULSION
  5. CODEINE [Concomitant]
     Indication: PREMATURE MENOPAUSE
     Route: 048
  6. CODEINE [Concomitant]
     Indication: MENORRHAGIA
     Route: 048
  7. NAPROXEN [Concomitant]
     Indication: ARTHRALGIA
     Route: 048
  8. FERROUS SULPHATE [Concomitant]
     Indication: ANAEMIA
     Route: 048
  9. SINGULAIR [Concomitant]
     Indication: ASTHMA
  10. DEPAKOTE ER [Concomitant]
     Indication: CONVULSION
     Dosage: 500 MG
     Route: 048
  11. DIOVAN HCT [Concomitant]
     Indication: HYPERTENSION
     Dosage: DOSE: 12.5/80 MG, ONCE A DAY
  12. IMITREX [Concomitant]
     Indication: MIGRAINE
     Dosage: DOSE: 50 MG
  13. ADVAIR [Concomitant]
     Indication: ASTHMA
     Dosage: INHALER, 1 PUFF
     Route: 055
  14. ADVAIR [Concomitant]
     Indication: CHRONIC OBSTRUCTIVE PULMONARY DISEASE
     Dosage: INHALER, 1 PUFF
     Route: 055
  15. VENTOLIN [Concomitant]
     Indication: ASTHMA
     Dosage: INHALER, 2 PUFFS
     Route: 055
  16. VENTOLIN [Concomitant]
     Indication: CHRONIC OBSTRUCTIVE PULMONARY DISEASE
     Dosage: INHALER, 2 PUFFS
     Route: 055

REACTIONS (3)
  - Fall [Unknown]
  - Joint injury [Not Recovered/Not Resolved]
  - Gait disturbance [Not Recovered/Not Resolved]
